FAERS Safety Report 25920246 (Version 2)
Quarter: 2025Q4

REPORT INFORMATION
  Report Type: Spontaneous
  Country: US (occurrence: US)
  Receive Date: 20251014
  Receipt Date: 20251023
  Transmission Date: 20260118
  Serious: Yes (Other)
  Sender: PFIZER
  Company Number: US-PFIZER INC-PV202500120692

PATIENT
  Age: 10 Month
  Sex: Male

DRUGS (1)
  1. MOROCTOCOG ALFA [Suspect]
     Active Substance: MOROCTOCOG ALFA
     Dosage: UNK UNK, AS NEEDED
     Route: 042
     Dates: start: 2015, end: 2015

REACTIONS (1)
  - Factor VIII inhibition [Not Recovered/Not Resolved]
